FAERS Safety Report 23584869 (Version 4)
Quarter: 2024Q1

REPORT INFORMATION
  Report Type: Report from Study
  Country: US (occurrence: US)
  Receive Date: 20240301
  Receipt Date: 20240329
  Transmission Date: 20240410
  Serious: Yes (Other)
  Sender: FDA-Public Use
  Company Number: US-UCBSA-2024009674

PATIENT
  Sex: Male

DRUGS (3)
  1. FINTEPLA [Suspect]
     Active Substance: FENFLURAMINE
     Indication: Lennox-Gastaut syndrome
     Dosage: 2.6 MILLILITER, 2X/DAY (BID) FOR 7 DAYS 5.9 ML BID THEREAFTER
     Dates: start: 20240213, end: 202402
  2. FINTEPLA [Suspect]
     Active Substance: FENFLURAMINE
     Dosage: 5.90 MILLILITER, 2X/DAY (BID)
     Dates: start: 20240222, end: 20240223
  3. FINTEPLA [Suspect]
     Active Substance: FENFLURAMINE
     Dosage: 5.2 MILLILITER, 2X/DAY (BID)
     Route: 048
     Dates: start: 202402, end: 20240302

REACTIONS (7)
  - Seizure [Not Recovered/Not Resolved]
  - Change in seizure presentation [Recovered/Resolved]
  - Fatigue [Unknown]
  - Somnolence [Unknown]
  - Insomnia [Unknown]
  - Pain [Unknown]
  - Skin wrinkling [Unknown]

NARRATIVE: CASE EVENT DATE: 20240101
